FAERS Safety Report 8879908 (Version 2)
Quarter: 2013Q2

REPORT INFORMATION
  Report Type: Report from Study
  Country: JP (occurrence: JP)
  Receive Date: 20121031
  Receipt Date: 20130425
  Transmission Date: 20140414
  Serious: Yes (Life-Threatening)
  Sender: FDA-Public Use
  Company Number: JP-GILEAD-2012-0063774

PATIENT
  Age: 30 Year
  Sex: Male

DRUGS (6)
  1. EMTRICITABINE/TENOFOVIR DISOPROXIL FUMARATE [Suspect]
     Indication: HIV INFECTION
     Dosage: 60 DF, QD
     Route: 048
     Dates: start: 20110918, end: 20110918
  2. EMTRICITABINE/TENOFOVIR DISOPROXIL FUMARATE [Suspect]
     Dosage: 1 DF, QD
     Route: 048
     Dates: start: 20110805, end: 20110918
  3. STOCRIN [Suspect]
     Indication: HIV INFECTION
     Dosage: 30 DF, QD
     Route: 048
     Dates: start: 20110918, end: 20110918
  4. STOCRIN [Suspect]
     Dosage: 600 MG, QD
     Route: 048
     Dates: start: 20110805, end: 20110918
  5. MYSLEE [Concomitant]
     Dosage: 100 DF, QD
     Dates: start: 20110918, end: 20110918
  6. MYSLEE [Concomitant]
     Dosage: UNK
     Dates: start: 20110805

REACTIONS (2)
  - Suicide attempt [Recovered/Resolved]
  - Intentional overdose [Recovered/Resolved]
